FAERS Safety Report 25360280 (Version 1)
Quarter: 2025Q2

REPORT INFORMATION
  Report Type: Spontaneous
  Country: US (occurrence: US)
  Receive Date: 20250527
  Receipt Date: 20250527
  Transmission Date: 20250716
  Serious: No
  Sender: ACCORD
  Company Number: US-Accord-470534

PATIENT
  Sex: Female

DRUGS (35)
  1. METHOTREXATE [Suspect]
     Active Substance: METHOTREXATE
     Indication: Product used for unknown indication
  2. TYLENOL [Concomitant]
     Active Substance: ACETAMINOPHEN
  3. NORVASC [Concomitant]
     Active Substance: AMLODIPINE BESYLATE
  4. ATROPINE [Concomitant]
     Active Substance: ATROPINE
  5. BACLOFEN [Concomitant]
     Active Substance: BACLOFEN
  6. CHOLECALCIFEROL [Concomitant]
     Active Substance: CHOLECALCIFEROL
  7. CYANOCOBALAMIN [Concomitant]
     Active Substance: CYANOCOBALAMIN
  8. CYCLOSPORINE [Concomitant]
     Active Substance: CYCLOSPORINE
  9. DENOSUMAB [Concomitant]
     Active Substance: DENOSUMAB
  10. BENADRYL [Concomitant]
     Active Substance: DIPHENHYDRAMINE HYDROCHLORIDE
  11. CYMBALTA [Concomitant]
     Active Substance: DULOXETINE HYDROCHLORIDE
  12. LASIX [Concomitant]
     Active Substance: FUROSEMIDE
  13. NEURONTIN [Concomitant]
     Active Substance: GABAPENTIN
  14. SYNTHROID [Concomitant]
     Active Substance: LEVOTHYROXINE SODIUM
  15. LEVOTHROID [Concomitant]
     Active Substance: LEVOTHYROXINE SODIUM
  16. PRINIVIL [Concomitant]
     Active Substance: LISINOPRIL
  17. ZESTRIL [Concomitant]
     Active Substance: LISINOPRIL
  18. ATIVAN [Concomitant]
     Active Substance: LORAZEPAM
  19. MAGNESIUM OXIDE [Concomitant]
     Active Substance: MAGNESIUM OXIDE
  20. GLUCOPHAGE [Concomitant]
     Active Substance: METFORMIN HYDROCHLORIDE
  21. TOPROL XL [Concomitant]
     Active Substance: METOPROLOL SUCCINATE
  22. MIRABEGRON [Concomitant]
     Active Substance: MIRABEGRON
  23. METHENAMINE AND SODIUM BIPHOSPHATE [Concomitant]
  24. NITROSTAT [Concomitant]
     Active Substance: NITROGLYCERIN
  25. PROTONIX [Concomitant]
     Active Substance: PANTOPRAZOLE SODIUM
  26. ELMIRON [Concomitant]
     Active Substance: PENTOSAN POLYSULFATE SODIUM
  27. SALAGEN [Concomitant]
     Active Substance: PILOCARPINE HYDROCHLORIDE
  28. K-DUR [Concomitant]
     Active Substance: POTASSIUM CHLORIDE
  29. KLOR-CON [Concomitant]
     Active Substance: POTASSIUM CHLORIDE
  30. DELTASONE [Concomitant]
     Active Substance: PREDNISONE
  31. SODIUM CHLORIDE [Concomitant]
     Active Substance: SODIUM CHLORIDE
  32. ALDACTONE [Concomitant]
     Active Substance: SPIRONOLACTONE
  33. CARAFATE [Concomitant]
     Active Substance: SUCRALFATE
  34. KENALOG [Concomitant]
     Active Substance: TRIAMCINOLONE ACETONIDE
  35. ZINC [Concomitant]
     Active Substance: ZINC

REACTIONS (2)
  - Nausea [Unknown]
  - Vomiting [Unknown]
